FAERS Safety Report 21958167 (Version 6)
Quarter: 2023Q4

REPORT INFORMATION
  Report Type: Spontaneous
  Country: US (occurrence: US)
  Receive Date: 20230206
  Receipt Date: 20231212
  Transmission Date: 20240109
  Serious: No
  Sender: FDA-Public Use
  Company Number: US-PFIZER INC-PV202300020952

PATIENT
  Age: 36 Year
  Sex: Female
  Weight: 84 kg

DRUGS (2)
  1. PREMARIN [Suspect]
     Active Substance: ESTROGENS, CONJUGATED
     Indication: Hormone level abnormal
     Dosage: 0.625 MG, 1X/DAY
     Dates: start: 1988
  2. ESTRADIOL [Suspect]
     Active Substance: ESTRADIOL
     Indication: Hormone replacement therapy
     Dosage: UNK

REACTIONS (5)
  - Off label use [Unknown]
  - Bradyphrenia [Recovered/Resolved]
  - Gait disturbance [Recovered/Resolved]
  - Mastication disorder [Recovered/Resolved]
  - Amnesia [Unknown]

NARRATIVE: CASE EVENT DATE: 19880101
